FAERS Safety Report 14194009 (Version 1)
Quarter: 2017Q4

REPORT INFORMATION
  Report Type: Spontaneous
  Country: US (occurrence: US)
  Receive Date: 20171116
  Receipt Date: 20171116
  Transmission Date: 20180321
  Serious: No
  Sender: FDA-Public Use
  Company Number: PHHY2017US168846

PATIENT
  Age: 54 Year
  Sex: Female

DRUGS (2)
  1. JAKAFI [Interacting]
     Active Substance: RUXOLITINIB
     Indication: GRAFT VERSUS HOST DISEASE
     Dosage: 10 MG, BID
     Route: 048
     Dates: start: 201702
  2. CYCLOSPORIN SANDOZ [Suspect]
     Active Substance: CYCLOSPORINE
     Indication: PRODUCT USED FOR UNKNOWN INDICATION
     Route: 065

REACTIONS (7)
  - Pruritus [Recovering/Resolving]
  - Off label use [Unknown]
  - Rash [Unknown]
  - Photosensitivity reaction [Unknown]
  - Blood creatine increased [Unknown]
  - Dizziness [Recovering/Resolving]
  - Drug interaction [Recovering/Resolving]

NARRATIVE: CASE EVENT DATE: 201702
